FAERS Safety Report 9993461 (Version 1)
Quarter: 2014Q1

REPORT INFORMATION
  Report Type: Report from Study
  Country: US (occurrence: US)
  Receive Date: 20140310
  Receipt Date: 20140310
  Transmission Date: 20141002
  Serious: Yes (Hospitalization)
  Sender: FDA-Public Use
  Company Number: US-ABBVIE-14P-163-1207644-00

PATIENT
  Age: 16 Year
  Sex: Female
  Weight: 44.49 kg

DRUGS (2)
  1. HUMIRA [Suspect]
     Indication: CROHN^S DISEASE
     Dates: start: 2013, end: 201305
  2. HUMIRA [Suspect]
     Dates: start: 201305, end: 20140207

REACTIONS (5)
  - Pallor [Recovered/Resolved]
  - Feeling abnormal [Recovered/Resolved]
  - Vulval abscess [Recovered/Resolved]
  - Vulval abscess [Not Recovered/Not Resolved]
  - Unevaluable event [Unknown]
